FAERS Safety Report 6368110-X (Version None)
Quarter: 2009Q3

REPORT INFORMATION
  Report Type: 
  Country: None (occurrence: None)
  Receive Date: 20090922
  Receipt Date: 20090914
  Transmission Date: 20100115
  Serious: Yes (Death, Other)
  Sender: FDA-Public Use
  Company Number: PHBS2007JP15089

PATIENT
  Sex: Female
  Weight: 48 kg

DRUGS (2)
  1. ZOMETA [Suspect]
     Indication: METASTASES TO BONE
     Dosage: 4 MG, QMO
     Route: 041
     Dates: start: 20050501, end: 20080304
  2. XELODA [Suspect]
     Indication: BREAST CANCER RECURRENT
     Dosage: 600MG/DAY
     Route: 048
     Dates: start: 20050501

REACTIONS (20)
  - BLOOD ALKALINE PHOSPHATASE INCREASED [None]
  - BONE DISORDER [None]
  - BONE LESION [None]
  - C-REACTIVE PROTEIN INCREASED [None]
  - GAMMA-GLUTAMYLTRANSFERASE INCREASED [None]
  - GINGIVAL PAIN [None]
  - GINGIVAL SWELLING [None]
  - HAEMOGLOBIN DECREASED [None]
  - INFLAMMATION [None]
  - MALIGNANT NEOPLASM PROGRESSION [None]
  - OSTEOMYELITIS [None]
  - OSTEONECROSIS [None]
  - PLATELET COUNT INCREASED [None]
  - PRIMARY SEQUESTRUM [None]
  - RED BLOOD CELL COUNT DECREASED [None]
  - SEQUESTRECTOMY [None]
  - THERAPEUTIC PROCEDURE [None]
  - TOOTH EXTRACTION [None]
  - TOOTHACHE [None]
  - X-RAY ABNORMAL [None]
